FAERS Safety Report 8231485-0 (Version None)
Quarter: 2012Q1

REPORT INFORMATION
  Report Type: 
  Country: None (occurrence: None)
  Receive Date: 20120323
  Receipt Date: 20120316
  Transmission Date: 20120608
  Serious: Yes (Other)
  Sender: FDA-Public Use
  Company Number: PHHY2012FR024090

PATIENT
  Age: 57 Year
  Sex: Female

DRUGS (1)
  1. ZOLEDRONOC ACID [Suspect]
     Indication: OSTEOPOROSIS
     Dosage: UNK UKN, UNK
     Route: 042
     Dates: start: 20110101

REACTIONS (3)
  - HAEMATOCHEZIA [None]
  - RECTAL HAEMORRHAGE [None]
  - GASTROINTESTINAL HAEMORRHAGE [None]
